FAERS Safety Report 23270818 (Version 1)
Quarter: 2023Q4

REPORT INFORMATION
  Report Type: Spontaneous
  Country: IT (occurrence: IT)
  Receive Date: 20231207
  Receipt Date: 20231207
  Transmission Date: 20240109
  Serious: Yes (Life-Threatening, Hospitalization)
  Sender: FDA-Public Use
  Company Number: None

PATIENT
  Age: 76 Year
  Sex: Female

DRUGS (2)
  1. ALTEPLASE [Suspect]
     Active Substance: ALTEPLASE
     Indication: Thrombolysis
     Dosage: 8 MG AS A BOLUS AND 73 MG AS INFUSION
     Route: 065
     Dates: start: 20230610, end: 20230610
  2. ALTEPLASE [Suspect]
     Active Substance: ALTEPLASE
     Dosage: 8 MG AS A BOLUS AND 73 MG AS INFUSION
     Route: 065
     Dates: start: 20230610, end: 20230610

REACTIONS (2)
  - Tongue oedema [Recovered/Resolved]
  - Dyspnoea [Recovered/Resolved]

NARRATIVE: CASE EVENT DATE: 20230610
